FAERS Safety Report 18521307 (Version 1)
Quarter: 2020Q4

REPORT INFORMATION
  Report Type: Spontaneous
  Country: CA (occurrence: CA)
  Receive Date: 20201119
  Receipt Date: 20201119
  Transmission Date: 20210114
  Serious: Yes (Death)
  Sender: FDA-Public Use
  Company Number: CA-JNJFOC-20201124735

PATIENT
  Sex: Male

DRUGS (1)
  1. ULTRAM [Suspect]
     Active Substance: TRAMADOL HYDROCHLORIDE
     Indication: PRODUCT USED FOR UNKNOWN INDICATION
     Route: 065

REACTIONS (7)
  - Sleep terror [Fatal]
  - Multiple injuries [Fatal]
  - Toxicologic test [Fatal]
  - Fall [Fatal]
  - Hallucination [Fatal]
  - Pulse absent [Fatal]
  - Multiple fractures [Fatal]
